FAERS Safety Report 25245371 (Version 1)
Quarter: 2025Q2

REPORT INFORMATION
  Report Type: Spontaneous
  Country: US (occurrence: US)
  Receive Date: 20250428
  Receipt Date: 20250428
  Transmission Date: 20250717
  Serious: Yes (Other)
  Sender: COOPERSURGICAL
  Company Number: US-COOPERSURGICAL, INC.-2025CPS003162

PATIENT
  Age: 29 Year
  Sex: Female
  Weight: 64.399 kg

DRUGS (5)
  1. PARAGARD T 380A [Suspect]
     Active Substance: COPPER
     Indication: Contraception
     Route: 015
     Dates: start: 20141211, end: 20221209
  2. ALBUTEROL [Concomitant]
     Active Substance: ALBUTEROL
     Dates: start: 201301
  3. ALBUTEROL [Concomitant]
     Active Substance: ALBUTEROL
     Dates: start: 201301
  4. CETIRIZINE [Concomitant]
     Active Substance: CETIRIZINE HYDROCHLORIDE
     Dates: start: 201301
  5. FLUTICASONE [Concomitant]
     Active Substance: FLUTICASONE
     Dates: start: 201301

REACTIONS (11)
  - Salpingectomy [Recovered/Resolved]
  - Device breakage [Recovered/Resolved]
  - Foreign body in reproductive tract [Recovered/Resolved]
  - Complication of device removal [Recovered/Resolved]
  - Procedural pain [Recovered/Resolved]
  - Emotional disorder [Unknown]
  - Device mechanical issue [Recovered/Resolved]
  - Muscle spasms [Recovered/Resolved]
  - Heavy menstrual bleeding [Not Recovered/Not Resolved]
  - Vaginal discharge [Not Recovered/Not Resolved]
  - Discomfort [Not Recovered/Not Resolved]

NARRATIVE: CASE EVENT DATE: 20170101
